FAERS Safety Report 14802227 (Version 5)
Quarter: 2018Q2

REPORT INFORMATION
  Report Type: Spontaneous
  Country: US (occurrence: US)
  Receive Date: 20180424
  Receipt Date: 20180613
  Transmission Date: 20180711
  Serious: Yes (Death)
  Sender: FDA-Public Use
  Company Number: US-VIFOR (INTERNATIONAL) INC.-VIT-2018-03620

PATIENT
  Age: 43 Year
  Sex: Female

DRUGS (15)
  1. DOCUSATE SODIUM. [Concomitant]
     Active Substance: DOCUSATE SODIUM
  2. AMLODIPINE BESILATE [Concomitant]
     Active Substance: AMLODIPINE BESYLATE
  3. COREG [Concomitant]
     Active Substance: CARVEDILOL
  4. NORVIR [Concomitant]
     Active Substance: RITONAVIR
  5. SEVELAMER CARBONATE. [Concomitant]
     Active Substance: SEVELAMER CARBONATE
  6. EMTRIVA [Concomitant]
     Active Substance: EMTRICITABINE
  7. SENSIPAR [Concomitant]
     Active Substance: CINACALCET HYDROCHLORIDE
  8. VELTASSA [Suspect]
     Active Substance: PATIROMER
     Indication: HYPERKALAEMIA
     Route: 048
     Dates: start: 20180330
  9. NIFEDIPINE. [Concomitant]
     Active Substance: NIFEDIPINE
  10. ISENTRESS [Concomitant]
     Active Substance: RALTEGRAVIR POTASSIUM
  11. DOXAZOSIN MESILATE [Concomitant]
     Active Substance: DOXAZOSIN MESYLATE
  12. VELTASSA [Suspect]
     Active Substance: PATIROMER
     Route: 048
  13. LYRICA [Concomitant]
     Active Substance: PREGABALIN
  14. FOSRENOL [Concomitant]
     Active Substance: LANTHANUM CARBONATE
  15. PREZISTA [Concomitant]
     Active Substance: DARUNAVIR ETHANOLATE

REACTIONS (5)
  - Product physical issue [Unknown]
  - Off label use [Unknown]
  - Treatment noncompliance [Unknown]
  - Death [Fatal]
  - Malaise [Unknown]

NARRATIVE: CASE EVENT DATE: 2018
